FAERS Safety Report 10530364 (Version 2)
Quarter: 2014Q4

REPORT INFORMATION
  Report Type: Spontaneous
  Country: US (occurrence: US)
  Receive Date: 20141021
  Receipt Date: 20141021
  Transmission Date: 20150528
  Serious: Yes (Other)
  Sender: FDA-Public Use
  Company Number: US-BANPHARM-20143148

PATIENT
  Sex: Female

DRUGS (1)
  1. ALEVE [Suspect]
     Active Substance: NAPROXEN SODIUM
     Route: 048

REACTIONS (7)
  - Fall [Unknown]
  - Loss of consciousness [Unknown]
  - Haematemesis [Unknown]
  - Faeces discoloured [Unknown]
  - Epistaxis [Unknown]
  - Migraine [Unknown]
  - Abdominal pain upper [Unknown]
